FAERS Safety Report 5290523-8 (Version None)
Quarter: 2007Q2

REPORT INFORMATION
  Report Type: 
  Country: None (occurrence: None)
  Receive Date: 20070409
  Receipt Date: 20070405
  Transmission Date: 20071010
  Serious: Yes (Hospitalization)
  Sender: FDA-Public Use
  Company Number: GB-BRISTOL-MYERS SQUIBB COMPANY-13739826

PATIENT
  Age: 45 Year
  Sex: Female
  Weight: 76 kg

DRUGS (4)
  1. CYCLOPHOSPHAMIDE [Suspect]
     Indication: BREAST CANCER
     Dates: start: 20070215, end: 20070215
  2. PACLITAXEL [Suspect]
     Indication: BREAST CANCER
     Dates: start: 20070313, end: 20070313
  3. EPIRUBICIN [Suspect]
     Indication: BREAST CANCER
     Dates: start: 20070215, end: 20070215
  4. GEMCITABINE HCL [Suspect]
     Indication: BREAST CANCER
     Dates: start: 20070313, end: 20070313

REACTIONS (5)
  - ANAEMIA [None]
  - COUGH [None]
  - FEBRILE NEUTROPENIA [None]
  - NEUTROPENIC SEPSIS [None]
  - PHARYNGOLARYNGEAL PAIN [None]
